FAERS Safety Report 4915737-5 (Version None)
Quarter: 2006Q1

REPORT INFORMATION
  Report Type: 
  Country: None (occurrence: None)
  Receive Date: 20060217
  Receipt Date: 20060208
  Transmission Date: 20060701
  Serious: Yes (Hospitalization)
  Sender: FDA-Public Use
  Company Number: US-JNJFOC-20060203103

PATIENT
  Sex: Female
  Weight: 103.42 kg

DRUGS (23)
  1. DURAGESIC-100 [Suspect]
     Route: 062
  2. DURAGESIC-100 [Suspect]
     Route: 062
  3. DURAGESIC-100 [Suspect]
     Route: 062
  4. NITROGLYCERIN [Concomitant]
     Indication: CHEST PAIN
     Route: 048
  5. TYLENOL W/ CODEINE NO. 3 [Concomitant]
     Indication: PAIN
     Route: 048
  6. TYLENOL W/ CODEINE NO. 3 [Concomitant]
     Indication: CHEST PAIN
     Route: 048
  7. HUMALOG [Concomitant]
     Route: 050
  8. REGULAR INSULIN [Concomitant]
     Route: 050
  9. ALBUTEROL [Concomitant]
     Indication: ASTHMA
     Route: 048
  10. ADVAIR DISKUS 100/50 [Concomitant]
     Route: 048
  11. ADVAIR DISKUS 100/50 [Concomitant]
     Indication: ASTHMA
     Route: 048
  12. NAPROSYN [Concomitant]
     Indication: ARTHRITIS
     Route: 048
  13. IMDUR [Concomitant]
     Route: 048
  14. LASIX [Concomitant]
     Route: 048
  15. PREVACID [Concomitant]
     Indication: GASTRIC DISORDER
     Route: 048
  16. POTASSIUM [Concomitant]
     Route: 048
  17. COREG [Concomitant]
     Route: 048
  18. ELAVIL [Concomitant]
     Indication: DEPRESSION
     Route: 048
  19. COUMADIN [Concomitant]
     Indication: ANTICOAGULANT THERAPY
     Route: 048
  20. VISTARIL [Concomitant]
     Indication: ANXIETY
     Route: 048
  21. PHENERGAN [Concomitant]
     Indication: NAUSEA
     Route: 054
  22. FLEXERIL [Concomitant]
     Route: 048
  23. ASPIRIN [Concomitant]
     Route: 048

REACTIONS (7)
  - APPLICATION SITE ERYTHEMA [None]
  - APPLICATION SITE VESICLES [None]
  - CARDIOVASCULAR DISORDER [None]
  - DECREASED APPETITE [None]
  - MIGRAINE [None]
  - THERAPEUTIC RESPONSE DECREASED [None]
  - WEIGHT DECREASED [None]
